FAERS Safety Report 7418673-8 (Version None)
Quarter: 2011Q2

REPORT INFORMATION
  Report Type: 
  Country: None (occurrence: None)
  Receive Date: 20110415
  Receipt Date: 20110322
  Transmission Date: 20111010
  Serious: Yes (Other)
  Sender: FDA-Public Use
  Company Number: US-BAYER-2010-007084

PATIENT
  Age: 42 Year
  Sex: Female
  Weight: 77.098 kg

DRUGS (3)
  1. IBUPROFEN [Concomitant]
  2. YAZ [Suspect]
     Indication: ACNE
     Dosage: UNK
     Route: 048
     Dates: start: 20070101, end: 20071101
  3. TYLENOL W/ CODEINE NO. 3 [Concomitant]

REACTIONS (1)
  - DEEP VEIN THROMBOSIS [None]
